FAERS Safety Report 5531798-7 (Version None)
Quarter: 2007Q4

REPORT INFORMATION
  Report Type: 
  Country: None (occurrence: None)
  Receive Date: 20071203
  Receipt Date: 20071128
  Transmission Date: 20080405
  Serious: Yes (Hospitalization)
  Sender: FDA-Public Use
  Company Number: US-GENENTECH-251981

PATIENT
  Sex: Female
  Weight: 58 kg

DRUGS (3)
  1. BEVACIZUMAB [Suspect]
     Indication: NON-SMALL CELL LUNG CANCER
     Dosage: 855 MG, Q3W
     Route: 042
     Dates: start: 20071018
  2. CARBOPLATIN [Suspect]
     Indication: NON-SMALL CELL LUNG CANCER
     Dosage: UNK, Q3W
     Route: 042
     Dates: start: 20071018
  3. GEMZAR [Suspect]
     Indication: NON-SMALL CELL LUNG CANCER
     Dosage: UNK, DAY1+8/Q3W
     Route: 042
     Dates: start: 20071018

REACTIONS (1)
  - IDIOPATHIC THROMBOCYTOPENIC PURPURA [None]
